FAERS Safety Report 23038742 (Version 2)
Quarter: 2023Q4

REPORT INFORMATION
  Report Type: Report from Study
  Country: JP (occurrence: JP)
  Receive Date: 20231006
  Receipt Date: 20231025
  Transmission Date: 20240109
  Serious: Yes (Hospitalization, Other)
  Sender: FDA-Public Use
  Company Number: JP-JNJFOC-20230870179

PATIENT
  Age: 89 Year
  Sex: Male
  Weight: 56.5 kg

DRUGS (17)
  1. APALUTAMIDE [Suspect]
     Active Substance: APALUTAMIDE
     Indication: Prostate cancer
     Route: 048
     Dates: start: 20230721
  2. OXYCONTIN [Concomitant]
     Active Substance: OXYCODONE HYDROCHLORIDE
     Indication: Pain
     Dosage: DOSE UNKNOWN, P.R.N
     Route: 048
  3. OXYCONTIN [Concomitant]
     Active Substance: OXYCODONE HYDROCHLORIDE
     Dosage: IN THE MORNING AND EVENING
     Route: 048
     Dates: end: 20230904
  4. OXYCONTIN [Concomitant]
     Active Substance: OXYCODONE HYDROCHLORIDE
     Dosage: IN THE MORNING AND EVENING
     Route: 048
     Dates: start: 20230904, end: 202309
  5. OXYCONTIN [Concomitant]
     Active Substance: OXYCODONE HYDROCHLORIDE
     Dosage: IN THE MORNING AND EVENING
     Route: 048
     Dates: start: 202309, end: 2023
  6. OXYCONTIN [Concomitant]
     Active Substance: OXYCODONE HYDROCHLORIDE
     Dosage: IN THE MORNING AND EVENING
     Route: 048
     Dates: start: 2023
  7. CALONAL [Concomitant]
     Active Substance: ACETAMINOPHEN
     Indication: Pain
     Dosage: DOSE UNKNOWN
     Route: 048
     Dates: end: 20230904
  8. CALONAL [Concomitant]
     Active Substance: ACETAMINOPHEN
     Dosage: IN THE MORNING, AFTERNOON AND EVENING, AT BEDTIME
     Route: 048
     Dates: start: 2023
  9. LOXOPROFEN SODIUM [Concomitant]
     Active Substance: LOXOPROFEN SODIUM
     Indication: Pain
     Dosage: DOSE UNKNOWN
     Route: 048
     Dates: end: 20230904
  10. OXYCODONE HYDROCHLORIDE [Concomitant]
     Active Substance: OXYCODONE HYDROCHLORIDE
     Indication: Pain
     Dosage: P.R.N
     Route: 048
     Dates: start: 20230904
  11. OXYCODONE HYDROCHLORIDE [Concomitant]
     Active Substance: OXYCODONE HYDROCHLORIDE
     Dosage: P.R.N
     Route: 048
     Dates: start: 202309
  12. GOSERELIN [Concomitant]
     Active Substance: GOSERELIN
     Indication: Prostate cancer
     Dosage: DOSE UNKNOWN
     Route: 058
  13. FUROSEMIDE [Concomitant]
     Active Substance: FUROSEMIDE
     Indication: Product used for unknown indication
     Route: 048
     Dates: end: 2023
  14. FUROSEMIDE [Concomitant]
     Active Substance: FUROSEMIDE
     Route: 048
     Dates: start: 2023
  15. SENNA [Concomitant]
     Active Substance: SENNA LEAF\SENNOSIDES\SENNOSIDES A AND B
     Indication: Product used for unknown indication
     Route: 048
  16. MAGNESIUM OXIDE [Concomitant]
     Active Substance: MAGNESIUM OXIDE
     Indication: Constipation
     Dosage: IN THE MORNING AND EVENING
     Route: 048
     Dates: start: 2023
  17. MORPHINE HYDROCHLORIDE [Concomitant]
     Active Substance: MORPHINE HYDROCHLORIDE
     Indication: Pain
     Route: 065
     Dates: start: 20231013

REACTIONS (16)
  - Pleural effusion [Not Recovered/Not Resolved]
  - Ascites [Not Recovered/Not Resolved]
  - Flank pain [Recovering/Resolving]
  - Malaise [Not Recovered/Not Resolved]
  - Oxygen saturation decreased [Recovering/Resolving]
  - Depressed level of consciousness [Recovering/Resolving]
  - Bone pain [Not Recovered/Not Resolved]
  - Somnolence [Not Recovered/Not Resolved]
  - Oedema [Not Recovered/Not Resolved]
  - Weight increased [Not Recovered/Not Resolved]
  - Urinary incontinence [Not Recovered/Not Resolved]
  - Pruritus [Not Recovered/Not Resolved]
  - Feeling abnormal [Recovered/Resolved]
  - Decreased appetite [Recovered/Resolved]
  - Faeces hard [Not Recovered/Not Resolved]
  - Constipation [Not Recovered/Not Resolved]

NARRATIVE: CASE EVENT DATE: 20230101
